FAERS Safety Report 6467682-4 (Version None)
Quarter: 2009Q4

REPORT INFORMATION
  Report Type: 
  Country: None (occurrence: None)
  Receive Date: 20091202
  Receipt Date: 20091123
  Transmission Date: 20100525
  Serious: Yes (Other)
  Sender: FDA-Public Use
  Company Number: PHEH2008US02524

PATIENT
  Sex: Female

DRUGS (13)
  1. SANDOSTATIN LAR [Suspect]
     Dosage: 80 MG, UNK
     Dates: start: 20030101
  2. ALTACE [Concomitant]
  3. SYNTHROID [Concomitant]
  4. TENORMIN [Concomitant]
  5. NORVASC [Concomitant]
  6. VITAMIN D [Concomitant]
  7. POTASSIUM [Concomitant]
  8. MANGANESE [Concomitant]
  9. OPIUM TINCTURE [Concomitant]
  10. LOMOTIL [Concomitant]
  11. GLUCOSAMINE W/CHONDROITIN [Concomitant]
  12. MUCINEX [Concomitant]
  13. BIOTIN [Concomitant]

REACTIONS (9)
  - CARDIAC DISORDER [None]
  - DIARRHOEA [None]
  - DRUG ADMINISTRATION ERROR [None]
  - DRUG INEFFECTIVE [None]
  - INJECTION SITE HAEMATOMA [None]
  - INJECTION SITE ULCER [None]
  - LIVER DISORDER [None]
  - LUNG DISORDER [None]
  - MASS [None]
